FAERS Safety Report 18435608 (Version 1)
Quarter: 2020Q4

REPORT INFORMATION
  Report Type: Spontaneous
  Country: US (occurrence: US)
  Receive Date: 20201027
  Receipt Date: 20201027
  Transmission Date: 20210114
  Serious: Yes (Disabling)
  Sender: FDA-Public Use
  Company Number: None

PATIENT
  Sex: Female

DRUGS (1)
  1. KYLEENA [Suspect]
     Active Substance: LEVONORGESTREL
     Dates: start: 20190215, end: 20201015

REACTIONS (6)
  - Menstruation irregular [None]
  - Metrorrhagia [None]
  - Ovarian cyst [None]
  - Device dislocation [None]
  - Muscle spasms [None]
  - Menorrhagia [None]
